FAERS Safety Report 9098052 (Version 1)
Quarter: 2013Q1

REPORT INFORMATION
  Report Type: Report from Study
  Country: CZ (occurrence: CZ)
  Receive Date: 20130212
  Receipt Date: 20130212
  Transmission Date: 20140127
  Serious: Yes (Other)
  Sender: FDA-Public Use
  Company Number: CZ-ROCHE-1185008

PATIENT
  Sex: 0

DRUGS (1)
  1. TOCILIZUMAB [Suspect]
     Indication: RHEUMATOID ARTHRITIS
     Route: 065

REACTIONS (10)
  - Infusion related reaction [Unknown]
  - Cardiovascular disorder [Unknown]
  - Gastrointestinal disorder [Unknown]
  - Nervous system disorder [Unknown]
  - Infection [Unknown]
  - Skin disorder [Unknown]
  - Hypersensitivity [Unknown]
  - Blood disorder [Unknown]
  - Eye disorder [Unknown]
  - Drug ineffective [Unknown]
